FAERS Safety Report 4751656-5 (Version None)
Quarter: 2005Q3

REPORT INFORMATION
  Report Type: 
  Country: None (occurrence: None)
  Receive Date: 20050822
  Receipt Date: 20050810
  Transmission Date: 20060218
  Serious: Yes (Hospitalization)
  Sender: FDA-Public Use
  Company Number: 200512536GDS

PATIENT
  Age: 65 Year
  Sex: Female
  Weight: 85 kg

DRUGS (8)
  1. DACARBAZINE [Suspect]
     Indication: METASTATIC MALIGNANT MELANOMA
     Dosage: 1920 MG, TOTAL DAILY, INTRAVENOUS
     Route: 042
     Dates: start: 20050329
  2. FELODIPINE [Concomitant]
  3. EUTHYROX [Concomitant]
  4. VOLTAREN [Concomitant]
  5. VENO SL [Concomitant]
  6. COVERSUM [Concomitant]
  7. METOCLOPRAMIDE [Concomitant]
  8. ZOFRAN [Concomitant]

REACTIONS (2)
  - HYPOTONIA [None]
  - VERTIGO [None]
